FAERS Safety Report 9970848 (Version 1)
Quarter: 2014Q1

REPORT INFORMATION
  Report Type: Report from Study
  Country: US (occurrence: US)
  Receive Date: 20140306
  Receipt Date: 20140306
  Transmission Date: 20141002
  Serious: No
  Sender: FDA-Public Use
  Company Number: US-ABBVIE-13P-163-1152103-00

PATIENT
  Sex: Female

DRUGS (7)
  1. HUMIRA [Suspect]
     Indication: CROHN^S DISEASE
     Route: 058
     Dates: start: 20130729
  2. EFFEXOR XR [Concomitant]
     Indication: ANXIETY
  3. SPORANOX [Concomitant]
     Indication: PROPHYLAXIS
  4. ALLERGY MEDICATION [Concomitant]
     Indication: SEASONAL ALLERGY
     Dosage: OVER THE COUNTER
  5. PHENERGAN [Concomitant]
     Indication: ABDOMINAL DISCOMFORT
  6. IMODIUM [Concomitant]
     Indication: DIARRHOEA
  7. LOMOTIL [Concomitant]
     Indication: DIARRHOEA

REACTIONS (4)
  - Diarrhoea [Not Recovered/Not Resolved]
  - Local swelling [Not Recovered/Not Resolved]
  - Pain in extremity [Not Recovered/Not Resolved]
  - Drug ineffective [Not Recovered/Not Resolved]
